FAERS Safety Report 8487032-1 (Version None)
Quarter: 2012Q3

REPORT INFORMATION
  Report Type: 
  Country: None (occurrence: None)
  Receive Date: 20120704
  Receipt Date: 20120629
  Transmission Date: 20120928
  Serious: Yes (Other)
  Sender: FDA-Public Use
  Company Number: PHHY2012AU053620

PATIENT
  Sex: Female

DRUGS (1)
  1. ZOLEDRONOC ACID [Suspect]
     Indication: OSTEOPENIA
     Route: 042
     Dates: start: 20120501

REACTIONS (3)
  - METASTASES TO SPINE [None]
  - TOOTH DISORDER [None]
  - METASTASES TO BONE [None]
